FAERS Safety Report 11239690 (Version 5)
Quarter: 2018Q1

REPORT INFORMATION
  Report Type: Report from Study
  Country: BR (occurrence: BR)
  Receive Date: 20150706
  Receipt Date: 20180215
  Transmission Date: 20180508
  Serious: Yes (Other)
  Sender: FDA-Public Use
  Company Number: PHHY2015BR077020

PATIENT
  Age: 80 Year
  Sex: Female
  Weight: 60 kg

DRUGS (2)
  1. CALCIUM [Concomitant]
     Active Substance: CALCIUM
     Indication: SUPPLEMENTATION THERAPY
     Dosage: 1 DF, QD
     Route: 048
  2. ACLASTA [Suspect]
     Active Substance: ZOLEDRONIC ACID
     Indication: OSTEOPOROSIS
     Dosage: 5 MG, Q12MO
     Route: 042
     Dates: start: 2013

REACTIONS (21)
  - Hypoacusis [Unknown]
  - Cardiac disorder [Recovering/Resolving]
  - Body height decreased [Unknown]
  - Nasopharyngitis [Unknown]
  - Bone pain [Not Recovered/Not Resolved]
  - Hypercholesterolaemia [Recovering/Resolving]
  - Vomiting [Recovered/Resolved]
  - Fatigue [Recovering/Resolving]
  - Influenza [Recovered/Resolved]
  - Thyroid disorder [Recovering/Resolving]
  - Diarrhoea [Recovered/Resolved]
  - Weight decreased [Unknown]
  - Somnolence [Unknown]
  - Dengue fever [Recovered/Resolved]
  - Dizziness [Recovered/Resolved]
  - Malaise [Recovering/Resolving]
  - Learning disorder [Unknown]
  - Memory impairment [Unknown]
  - Gait disturbance [Unknown]
  - Pain [Recovered/Resolved]
  - Arthralgia [Not Recovered/Not Resolved]

NARRATIVE: CASE EVENT DATE: 201701
